FAERS Safety Report 11544896 (Version 1)
Quarter: 2015Q3

REPORT INFORMATION
  Report Type: Report from Study
  Country: US (occurrence: US)
  Receive Date: 20150924
  Receipt Date: 20150924
  Transmission Date: 20151125
  Serious: Yes (Other)
  Sender: FDA-Public Use
  Company Number: PHEH2015US018388

PATIENT
  Sex: Male
  Weight: 112.93 kg

DRUGS (2)
  1. AMPYRA [Concomitant]
     Active Substance: DALFAMPRIDINE
     Indication: GAIT DISTURBANCE
     Dosage: UNK UNK, QD (EVERY MORNING)
     Route: 065
  2. GILENYA [Suspect]
     Active Substance: FINGOLIMOD HYDROCHLORIDE
     Indication: MULTIPLE SCLEROSIS
     Dosage: 0.5 MG, QD
     Route: 048
     Dates: start: 20131216

REACTIONS (9)
  - Muscle spasms [Unknown]
  - Sleep apnoea syndrome [Unknown]
  - Obesity [Unknown]
  - Essential hypertension [Unknown]
  - Gait disturbance [Unknown]
  - Eye movement disorder [Unknown]
  - Central nervous system lesion [Unknown]
  - Muscular weakness [Unknown]
  - Urinary incontinence [Unknown]

NARRATIVE: CASE EVENT DATE: 2014
